FAERS Safety Report 24322357 (Version 1)
Quarter: 2024Q3

REPORT INFORMATION
  Report Type: Spontaneous
  Country: US (occurrence: US)
  Receive Date: 20240916
  Receipt Date: 20240916
  Transmission Date: 20241017
  Serious: Yes (Other)
  Sender: Long Grove Pharmaceuticals
  Company Number: US-Long Grove-000072

PATIENT
  Age: 82 Year
  Sex: Male

DRUGS (6)
  1. TRIAMCINOLONE ACETONIDE [Suspect]
     Active Substance: TRIAMCINOLONE ACETONIDE
     Indication: Cystoid macular oedema
     Dosage: STK, 20 MG, EVERY 3 MONTHS, FOR A TOTAL OF 3 DOSES, IN EACH EYE
  2. DARUNAVIR [Suspect]
     Active Substance: DARUNAVIR
     Indication: HIV infection
  3. RITONAVIR [Suspect]
     Active Substance: RITONAVIR
     Indication: HIV infection
  4. FUROSEMIDE [Concomitant]
     Active Substance: FUROSEMIDE
     Indication: Product used for unknown indication
  5. INSULIN NOS [Concomitant]
     Active Substance: INSULIN NOS
     Indication: Product used for unknown indication
  6. APIXABAN [Concomitant]
     Active Substance: APIXABAN
     Indication: Product used for unknown indication

REACTIONS (1)
  - Cushing^s syndrome [Recovered/Resolved]
